FAERS Safety Report 10484570 (Version 1)
Quarter: 2014Q3

REPORT INFORMATION
  Report Type: Spontaneous
  Country: US (occurrence: None)
  Receive Date: 20140926
  Receipt Date: 20140926
  Transmission Date: 20150326
  Serious: Yes (Other)
  Sender: FDA-Public Use
  Company Number: 2014HINLIT0864

PATIENT
  Age: 55 Year
  Sex: Female

DRUGS (6)
  1. ZIDOVUDINE (ZIDOVUDINE) [Suspect]
     Active Substance: ZIDOVUDINE
     Indication: HIV INFECTION
  2. BUDESONIDE. [Concomitant]
     Active Substance: BUDESONIDE
  3. LAMIVUDINE (LAMIVUDINE) [Suspect]
     Active Substance: LAMIVUDINE
     Indication: HIV INFECTION
  4. LOPINAVIR + RITONAVIR (LOPINAVIR, RITONAVIR) UNKNOWN [Suspect]
     Active Substance: LOPINAVIR\RITONAVIR
     Indication: HIV INFECTION
  5. FLUTICASONE PROPIONATE. [Suspect]
     Active Substance: FLUTICASONE PROPIONATE
     Indication: PRODUCT USED FOR UNKNOWN INDICATION
  6. SALMETEROL [Concomitant]
     Active Substance: SALMETEROL

REACTIONS (5)
  - Fatigue [None]
  - Drug interaction [None]
  - Weight increased [None]
  - Cushingoid [None]
  - Cushing^s syndrome [None]
